FAERS Safety Report 19125879 (Version 1)
Quarter: 2021Q2

REPORT INFORMATION
  Report Type: Spontaneous
  Country: FR (occurrence: FR)
  Receive Date: 20210412
  Receipt Date: 20210412
  Transmission Date: 20210717
  Serious: Yes (Hospitalization)
  Sender: FDA-Public Use
  Company Number: FR-SA-2021SA108788

PATIENT
  Age: 33 Year
  Sex: Male

DRUGS (10)
  1. BRILIQUE [Suspect]
     Active Substance: TICAGRELOR
     Dosage: 90 MG, QD
     Dates: start: 20210303, end: 20210309
  2. EPLERENONE. [Suspect]
     Active Substance: EPLERENONE
     Dosage: 12.5 MG, QD
     Dates: start: 20210303
  3. DOBUTAMINE [Suspect]
     Active Substance: DOBUTAMINE HYDROCHLORIDE
     Indication: CARDIOGENIC SHOCK
     Dosage: UNK
     Dates: start: 20210309
  4. HEPARIN SODIUM. [Suspect]
     Active Substance: HEPARIN SODIUM
     Indication: PROPHYLAXIS
     Route: 058
     Dates: start: 20210301, end: 20210309
  5. FUROSEMIDE. [Suspect]
     Active Substance: FUROSEMIDE
     Indication: HYPONATRAEMIA
     Dosage: 40 MG, QD
     Dates: start: 20210303, end: 20210309
  6. KARDEGIC [Suspect]
     Active Substance: ASPIRIN DL-LYSINE
     Dosage: 75 MG, QD
     Dates: start: 20210302
  7. FENTANYL. [Suspect]
     Active Substance: FENTANYL
     Dosage: 0.7 UG EVERY 1 HR
     Dates: start: 20210301, end: 20210308
  8. PROPOFOL. [Suspect]
     Active Substance: PROPOFOL
     Dosage: PROPOFOL 40 MG / H
     Dates: start: 20210301, end: 20210309
  9. ATORVASTATIN [Suspect]
     Active Substance: ATORVASTATIN
     Dosage: 80 MG, QD
     Dates: start: 20210302
  10. PLAVIX [Suspect]
     Active Substance: CLOPIDOGREL BISULFATE
     Dosage: 75 MG, QD
     Dates: start: 20210309

REACTIONS (1)
  - Hepatic cytolysis [Recovering/Resolving]

NARRATIVE: CASE EVENT DATE: 20210310
